FAERS Safety Report 10708933 (Version 4)
Quarter: 2015Q1

REPORT INFORMATION
  Report Type: Report from Study
  Country: DE (occurrence: DE)
  Receive Date: 20150114
  Receipt Date: 20150327
  Transmission Date: 20150721
  Serious: Yes (Hospitalization)
  Sender: FDA-Public Use
  Company Number: DE-AMGEN-DEUCT2015002395

PATIENT
  Age: 74 Year
  Sex: Female
  Weight: 73 kg

DRUGS (52)
  1. TILIDIN [Concomitant]
     Active Substance: NALOXONE HYDROCHLORIDE\TILIDINE HYDROCHLORIDE
     Dosage: 50 MG, UNK
     Route: 048
     Dates: start: 20141113
  2. NALOXON [Concomitant]
     Dosage: 4 MG, UNK
     Route: 048
     Dates: start: 20141113
  3. STEROFUNDIN [Concomitant]
     Dosage: 1000 ML-3000 MG, UNK
     Route: 042
     Dates: start: 20141208, end: 20150115
  4. DELIX                              /00885601/ [Concomitant]
     Dosage: 2.5-5 MG, UNK
     Route: 048
     Dates: start: 20141104, end: 20150112
  5. TOREM                              /01036501/ [Concomitant]
     Active Substance: TORSEMIDE
     Dosage: 10 - 20 MG, UNK
     Route: 048
     Dates: start: 20141103
  6. VOMEX A [Concomitant]
     Active Substance: DIMENHYDRINATE
     Dosage: 1 UNK, UNK
     Route: 042
     Dates: start: 20141111, end: 20141111
  7. METHOTREXATE [Concomitant]
     Active Substance: METHOTREXATE
     Dosage: 12 MG, UNK
     Route: 037
     Dates: start: 20141029, end: 20141029
  8. ALLOPURINOL. [Concomitant]
     Active Substance: ALLOPURINOL
     Dosage: 100-300 MG, UNK
     Route: 048
     Dates: start: 20141103
  9. LASIX [Concomitant]
     Active Substance: FUROSEMIDE
     Dosage: 40 MG, UNK
     Dates: start: 20141103, end: 20150112
  10. BUSCOPAN [Concomitant]
     Active Substance: BUTYLSCOPOLAMINE BROMIDE
     Dosage: 1 UNK, UNK
     Route: 042
     Dates: start: 20141106, end: 20141106
  11. PREPACOL                           /01721201/ [Concomitant]
     Dosage: 1 UNK, UNK
     Route: 048
     Dates: start: 20150105, end: 20150105
  12. AERIUS [Concomitant]
     Active Substance: DESLORATADINE
     Dosage: 5 MG, UNK
     Route: 048
     Dates: start: 20141121
  13. NACL [Concomitant]
     Active Substance: SODIUM CHLORIDE
     Dosage: 100 TO 2000 ML, UNK
     Route: 042
     Dates: start: 20141029, end: 20150122
  14. KALINOR                            /00031402/ [Concomitant]
     Active Substance: POTASSIUM CITRATE
     Dosage: 1 UNK, AND 40-80 ML, UNK
     Dates: start: 20141102, end: 20150115
  15. NITROLINGUAL [Concomitant]
     Active Substance: NITROGLYCERIN
     Dosage: 1 TO 2 UNK, UNK
     Route: 050
     Dates: start: 20141106, end: 20141112
  16. VESIKUR [Concomitant]
     Active Substance: SOLIFENACIN SUCCINATE
     Dosage: 10 MG, UNK
     Route: 048
     Dates: start: 20141105
  17. PANTOZOL [Concomitant]
     Active Substance: PANTOPRAZOLE SODIUM
     Dosage: 40 MG, UNK
     Route: 048
     Dates: start: 20141110
  18. EMESAN                             /00000402/ [Concomitant]
     Dosage: 1 UNK, UNK
     Route: 048
     Dates: start: 20141205
  19. NATRIUMHYDROGENCARBONAT [Concomitant]
     Dosage: 50 TO 100 ML, UNK
     Route: 042
     Dates: start: 20141111, end: 20141229
  20. REMESTAN [Concomitant]
     Dosage: 10 MG, UNK
     Route: 048
     Dates: start: 20141029, end: 20141103
  21. CYTARABINE. [Concomitant]
     Active Substance: CYTARABINE
     Dosage: 40 MG, UNK
     Route: 037
     Dates: start: 20141029, end: 20141029
  22. LAXOBERAL [Concomitant]
     Active Substance: SODIUM PICOSULFATE
     Dosage: 1 TO 3 AND 10 TO 15 GTT, UNK
     Dates: start: 20141231, end: 20150104
  23. NOVALGIN [Concomitant]
     Active Substance: METAMIZOLE SODIUM
     Dosage: 20 GTT, UNK
     Dates: start: 20141101
  24. FLUCONAZOL [Concomitant]
     Active Substance: FLUCONAZOLE
     Dosage: 200 MG, UNK
     Route: 042
     Dates: start: 20141112, end: 20141119
  25. PIPERACILLIN W/SULBACTAM [Concomitant]
     Dosage: 4.5 G, UNK
     Route: 042
     Dates: start: 20141102, end: 20141103
  26. BLINATUMOMAB [Suspect]
     Active Substance: BLINATUMOMAB
     Indication: ACUTE LYMPHOCYTIC LEUKAEMIA
     Dosage: 9 MUG, UNK
     Route: 041
     Dates: start: 20141104
  27. DEXAMETHASONE. [Concomitant]
     Active Substance: DEXAMETHASONE
     Dosage: 4-20 MG, UNK
     Dates: start: 20141029, end: 20150122
  28. IBUPROFEN. [Concomitant]
     Active Substance: IBUPROFEN
     Dosage: 600 MG, UNK
     Route: 048
     Dates: start: 20141124
  29. DORMICUM                           /00036201/ [Concomitant]
     Active Substance: NITRAZEPAM
     Dosage: 4 TO 5 ML, UNK
     Route: 042
     Dates: start: 20141029, end: 20141208
  30. ADALAT [Concomitant]
     Active Substance: NIFEDIPINE
     Dosage: 5 TO 20 MG, UNK
     Route: 048
     Dates: start: 20141101, end: 20141231
  31. PYRILAX [Concomitant]
     Dosage: 20 MG- 1 UNK, UNK
     Route: 048
     Dates: start: 20141030, end: 20141030
  32. ADUMBRAN [Concomitant]
     Dosage: 10 MG, UNK
     Route: 048
     Dates: start: 20141031, end: 20141116
  33. BELOC-ZOK COMP [Concomitant]
     Active Substance: HYDROCHLOROTHIAZIDE\METOPROLOL SUCCINATE
     Dosage: 47.5 MG, UNK
     Route: 048
  34. CIPROFLOXACIN. [Concomitant]
     Active Substance: CIPROFLOXACIN
     Dosage: 250 MG, UNK
     Route: 048
     Dates: start: 20141029, end: 20150120
  35. METOHEXAL                          /00376902/ [Concomitant]
     Active Substance: METOPROLOL SUCCINATE
     Dosage: 47.5 TO 95 MG, UNK
     Route: 048
     Dates: start: 20141104, end: 20141229
  36. CARMEN                             /00740901/ [Concomitant]
     Dosage: 10 MG, UNK
     Route: 048
     Dates: start: 20141108
  37. AMPHO MORONAL [Concomitant]
     Dosage: UNK
     Route: 048
     Dates: start: 20141106, end: 20141112
  38. NOVALGIN [Concomitant]
     Active Substance: METAMIZOLE SODIUM
     Dosage: 20 GTT, UNK
     Route: 048
     Dates: start: 20141101
  39. TAZOBAC [Concomitant]
     Active Substance: PIPERACILLIN SODIUM\TAZOBACTAM SODIUM
     Dosage: 4.5 G, UNK
     Route: 042
     Dates: start: 20141111, end: 20141117
  40. ONDANSETRON [Concomitant]
     Active Substance: ONDANSETRON
     Dosage: 4 MG, UNK
     Dates: start: 20141112, end: 20150107
  41. ERYTHROCYTES [Concomitant]
     Active Substance: HUMAN RED BLOOD CELL
     Dosage: 1 UNK, UNK
     Route: 042
     Dates: start: 20141031, end: 20141124
  42. URALYT                             /01779901/ [Concomitant]
     Dosage: 1 UNK, UNK
     Route: 048
     Dates: start: 20141104, end: 20141230
  43. TAVEGIL                            /00137201/ [Concomitant]
     Active Substance: CLEMASTINE FUMARATE
     Dosage: 1 UNK, UNK
     Route: 042
     Dates: start: 20141104, end: 20150122
  44. CATAPRESAN                         /00171101/ [Concomitant]
     Active Substance: CLONIDINE
     Dosage: 0.5 UNK, UNK
     Route: 042
     Dates: start: 20141104, end: 20141105
  45. NEUPOGEN [Concomitant]
     Active Substance: FILGRASTIM
     Dosage: 30 UNK, UNK
     Route: 058
     Dates: start: 20141111, end: 20141119
  46. PLATELETS [Concomitant]
     Active Substance: HUMAN PLATELET, ALLOGENIC
     Dosage: 1 UNK, UNK
     Route: 042
     Dates: start: 20141103, end: 20141119
  47. CETIRIZIN [Concomitant]
     Active Substance: CETIRIZINE HYDROCHLORIDE
     Dosage: 10 MG, UNK
     Route: 048
     Dates: start: 20141217, end: 20141226
  48. SKID [Concomitant]
     Dosage: 600 MG, UNK
     Route: 048
     Dates: start: 20141107, end: 20150107
  49. PCM [Concomitant]
     Dosage: 500 MG TO 1 G, UNK
     Dates: start: 20141031, end: 20150115
  50. LAXOFALK [Concomitant]
     Dosage: 5 MG, UNK
     Route: 048
     Dates: start: 20141104, end: 20141104
  51. MADOPAR [Concomitant]
     Active Substance: BENSERAZIDE HYDROCHLORIDE\LEVODOPA
     Dosage: 62.5 MG, UNK
     Route: 048
  52. RANITIC [Concomitant]
     Active Substance: RANITIDINE HYDROCHLORIDE
     Dosage: 1 UNK, UNK
     Route: 042
     Dates: start: 20141229, end: 20150122

REACTIONS (1)
  - Colitis [Recovered/Resolved]

NARRATIVE: CASE EVENT DATE: 20150110
